FAERS Safety Report 25826958 (Version 2)
Quarter: 2025Q4

REPORT INFORMATION
  Report Type: Report from Study
  Country: US (occurrence: US)
  Receive Date: 20250920
  Receipt Date: 20251009
  Transmission Date: 20260118
  Serious: Yes (Hospitalization, Other)
  Sender: ABBVIE
  Company Number: US-ABBVIE-6468292

PATIENT
  Age: 69 Year
  Sex: Male

DRUGS (1)
  1. CREON [Suspect]
     Active Substance: PANCRELIPASE AMYLASE\PANCRELIPASE LIPASE\PANCRELIPASE PROTEASE
     Indication: Pancreatic failure
     Route: 048
     Dates: start: 202503, end: 202508

REACTIONS (6)
  - Colectomy [Recovered/Resolved]
  - Pancreatitis [Recovered/Resolved]
  - Thrombosis [Recovered/Resolved]
  - Vomiting [Recovered/Resolved]
  - Pain [Recovered/Resolved]
  - Pancreatic failure [Not Recovered/Not Resolved]

NARRATIVE: CASE EVENT DATE: 20250101
